FAERS Safety Report 8560113-X (Version None)
Quarter: 2012Q3

REPORT INFORMATION
  Report Type: 
  Country: None (occurrence: None)
  Receive Date: 20120727
  Receipt Date: 20120727
  Transmission Date: 20120928
  Serious: No
  Sender: FDA-Public Use
  Company Number: None

PATIENT
  Sex: Female

DRUGS (1)
  1. ENBREL [Suspect]
     Indication: RHEUMATOID ARTHRITIS
     Dosage: 50MG, WEEKLY, SQ
     Dates: start: 20120508, end: 20120715

REACTIONS (3)
  - VISUAL ACUITY REDUCED [None]
  - TREMOR [None]
  - VISION BLURRED [None]
